FAERS Safety Report 5027281-8 (Version None)
Quarter: 2006Q2

REPORT INFORMATION
  Report Type: 
  Country: None (occurrence: None)
  Receive Date: 20060608
  Receipt Date: 20060526
  Transmission Date: 20061013
  Serious: Yes (Other)
  Sender: FDA-Public Use
  Company Number: 2006070588

PATIENT
  Age: 51 Year
  Sex: Female
  Weight: 82.2 kg

DRUGS (4)
  1. EXEMESTANE [Suspect]
     Indication: BREAST CANCER METASTATIC
     Dosage: ORAL
     Route: 048
     Dates: start: 20060201, end: 20060518
  2. VENLAFAXINE HCL [Concomitant]
  3. RANITIDINE [Concomitant]
  4. CO-CODAMOL (CODEINE PHOSPHATE, PARACETAMOL) [Concomitant]

REACTIONS (1)
  - OESOPHAGITIS [None]
